FAERS Safety Report 24562408 (Version 1)
Quarter: 2024Q4

REPORT INFORMATION
  Report Type: Spontaneous
  Country: US (occurrence: US)
  Receive Date: 20241029
  Receipt Date: 20241029
  Transmission Date: 20250115
  Serious: No
  Sender: MYLAN
  Company Number: US-MYLANLABS-2024M1096026

PATIENT
  Sex: Female
  Weight: 99.79 kg

DRUGS (1)
  1. XULANE [Suspect]
     Active Substance: ETHINYL ESTRADIOL\NORELGESTROMIN
     Indication: Menstrual disorder
     Dosage: 150/35 MICROGRAM, QD (ONCE A WEEK)
     Route: 062
     Dates: start: 20240915

REACTIONS (2)
  - Off label use [Unknown]
  - Product adhesion issue [Unknown]
